FAERS Safety Report 8815501 (Version 1)
Quarter: 2012Q4

REPORT INFORMATION
  Report Type: 
  Country: CH (occurrence: CH)
  Receive Date: 20120928
  Receipt Date: 20120928
  Transmission Date: 20130627
  Serious: Yes (Hospitalization)
  Sender: FDA-Public Use
  Company Number: CH-GLAXOSMITHKLINE-B0833746A

PATIENT
  Age: 54 Year
  Sex: Female

DRUGS (4)
  1. LAMOTRIGINE [Suspect]
     Indication: EPILEPSY
     Dosage: 200MG Per day
     Route: 048
  2. ZYPREXA [Suspect]
     Indication: DEPRESSION
     Dosage: 280MG Per day
     Route: 048
  3. VALDOXAN [Suspect]
     Indication: DEPRESSION
     Dosage: 50MG Per day
     Route: 048
  4. TRUXAL [Suspect]
     Indication: DEPRESSION
     Dosage: 135MG Per day
     Route: 048

REACTIONS (4)
  - Suicide attempt [Unknown]
  - Intentional overdose [Unknown]
  - Depressed level of consciousness [Unknown]
  - Tachycardia [Unknown]
